FAERS Safety Report 25044056 (Version 1)
Quarter: 2025Q1

REPORT INFORMATION
  Report Type: Spontaneous
  Country: US (occurrence: US)
  Receive Date: 20250306
  Receipt Date: 20250306
  Transmission Date: 20250409
  Serious: No
  Sender: AZURITY PHARMACEUTICALS
  Company Number: US-APCER-AZR202407-000063

PATIENT
  Age: 80 Year
  Sex: Female

DRUGS (1)
  1. SKLICE [Suspect]
     Active Substance: IVERMECTIN
     Indication: Product used for unknown indication
     Route: 061

REACTIONS (2)
  - Paraesthesia [Unknown]
  - Head discomfort [Unknown]
